FAERS Safety Report 18217287 (Version 2)
Quarter: 2021Q1

REPORT INFORMATION
  Report Type: Spontaneous
  Country: US (occurrence: US)
  Receive Date: 20200901
  Receipt Date: 20210208
  Transmission Date: 20210419
  Serious: No
  Sender: FDA-Public Use
  Company Number: US-PFIZER INC-2020337091

PATIENT
  Age: 81 Year
  Sex: Female
  Weight: 81.65 kg

DRUGS (2)
  1. LYRICA [Suspect]
     Active Substance: PREGABALIN
     Indication: RESTLESS LEGS SYNDROME
  2. LYRICA [Suspect]
     Active Substance: PREGABALIN
     Indication: NEUROPATHY PERIPHERAL
     Dosage: 75 MG, 1X/DAY
     Route: 048

REACTIONS (3)
  - Prescription drug used without a prescription [Unknown]
  - Insomnia [Unknown]
  - Cerebral disorder [Unknown]

NARRATIVE: CASE EVENT DATE: 20210201
